FAERS Safety Report 15547054 (Version 2)
Quarter: 2018Q4

REPORT INFORMATION
  Report Type: Spontaneous
  Country: US (occurrence: US)
  Receive Date: 20181024
  Receipt Date: 20181117
  Transmission Date: 20190205
  Serious: No
  Sender: FDA-Public Use
  Company Number: US-009507513-1810USA004580

PATIENT
  Age: 1 Year
  Sex: Female
  Weight: 4.08 kg

DRUGS (4)
  1. STERILE DILUENT (WATER) [Suspect]
     Active Substance: WATER
     Indication: PROPHYLAXIS
     Dosage: UNK
     Dates: start: 20180918
  2. HAEMOPHILUS B CONJUGATE VACCINE NOS [Suspect]
     Active Substance: HAEMOPHILUS B CONJUGATE VACCINE
     Dosage: UNK
     Dates: start: 20180918
  3. VARIVAX [Suspect]
     Active Substance: VARICELLA-ZOSTER VIRUS STRAIN OKA/MERCK LIVE ANTIGEN
     Indication: PROPHYLAXIS
     Dates: start: 20180918, end: 20180918
  4. DIPHTHERIA AND TETANUS TOXOIDS AND ACELLULAR PERTUSSIS VACCINE ADSORBED NOS [Suspect]
     Active Substance: DIPHTHERIA AND TETANUS TOXOIDS AND ACELLULAR PERTUSSIS VACCINE ADSORBED
     Dosage: UNK
     Dates: start: 20180918

REACTIONS (4)
  - Gastroenteritis [Recovered/Resolved]
  - Crying [Recovered/Resolved]
  - Rash [Recovered/Resolved]
  - Irritability [Recovered/Resolved]

NARRATIVE: CASE EVENT DATE: 2018
